FAERS Safety Report 7999100-9 (Version None)
Quarter: 2011Q4

REPORT INFORMATION
  Report Type: 
  Country: None (occurrence: None)
  Receive Date: 20111221
  Receipt Date: 20111214
  Transmission Date: 20120403
  Serious: Yes (Hospitalization, Other)
  Sender: FDA-Public Use
  Company Number: CA-ABBOTT-11P-028-0883144-00

PATIENT
  Sex: Male
  Weight: 74.91 kg

DRUGS (6)
  1. HUMIRA [Suspect]
  2. BISOPROLOL FUMARATE [Concomitant]
     Indication: CARDIAC DISORDER
     Route: 048
  3. FERROUS FUMARATE [Concomitant]
     Indication: MINERAL SUPPLEMENTATION
     Route: 048
  4. CODEINE PHOSPHATE [Concomitant]
     Indication: PRODUCT USED FOR UNKNOWN INDICATION
     Route: 048
  5. HUMIRA [Suspect]
     Indication: CROHN'S DISEASE
     Dosage: (80MG)
     Route: 058
     Dates: start: 20080102, end: 20110705
  6. PRILOSEC [Concomitant]
     Indication: CROHN'S DISEASE
     Route: 048

REACTIONS (5)
  - INTESTINAL OBSTRUCTION [None]
  - OEDEMA PERIPHERAL [None]
  - INTESTINAL PERFORATION [None]
  - PYREXIA [None]
  - IMPAIRED HEALING [None]
